FAERS Safety Report 7702910-6 (Version None)
Quarter: 2011Q3

REPORT INFORMATION
  Report Type: 
  Country: None (occurrence: None)
  Receive Date: 20110823
  Receipt Date: 20110811
  Transmission Date: 20111222
  Serious: Yes (Hospitalization)
  Sender: FDA-Public Use
  Company Number: US-JNJFOC-20110806315

PATIENT
  Sex: Male
  Weight: 106.6 kg

DRUGS (2)
  1. REMICADE [Suspect]
     Indication: ANKYLOSING SPONDYLITIS
     Route: 042
     Dates: start: 20090101
  2. REMICADE [Suspect]
     Route: 042

REACTIONS (8)
  - OPEN WOUND [None]
  - INFLUENZA LIKE ILLNESS [None]
  - GASTROOESOPHAGEAL REFLUX DISEASE [None]
  - ARTHRITIS [None]
  - HYPERTENSION [None]
  - RESTLESS LEGS SYNDROME [None]
  - INFECTION [None]
  - DRUG INEFFECTIVE [None]
